FAERS Safety Report 21340597 (Version 1)
Quarter: 2022Q3

REPORT INFORMATION
  Report Type: Spontaneous
  Country: US (occurrence: US)
  Receive Date: 20220916
  Receipt Date: 20220916
  Transmission Date: 20221027
  Serious: No
  Sender: FDA-Public Use
  Company Number: US-SA-SAC20220915000061

PATIENT
  Sex: Female

DRUGS (4)
  1. DUPIXENT [Suspect]
     Active Substance: DUPILUMAB
     Indication: Dermatitis atopic
     Dosage: 300MG QOW
     Route: 058
  2. ROSUVASTATIN [Concomitant]
     Active Substance: ROSUVASTATIN
     Dosage: 20MG
  3. TELMISARTAN [Concomitant]
     Active Substance: TELMISARTAN
  4. TRULICITY [Concomitant]
     Active Substance: DULAGLUTIDE
     Dosage: SOP 4.5MG/0.5ML
     Route: 058

REACTIONS (3)
  - Abnormal sensation in eye [Not Recovered/Not Resolved]
  - Injection site swelling [Not Recovered/Not Resolved]
  - Dry eye [Not Recovered/Not Resolved]
